FAERS Safety Report 20661694 (Version 1)
Quarter: 2022Q2

REPORT INFORMATION
  Report Type: Spontaneous
  Country: CH (occurrence: CH)
  Receive Date: 20220401
  Receipt Date: 20220401
  Transmission Date: 20220721
  Serious: Yes (Other)
  Sender: FDA-Public Use
  Company Number: CH-SUN PHARMACEUTICAL INDUSTRIES LTD-2022R1-331355

PATIENT
  Age: 68 Year
  Sex: Male

DRUGS (2)
  1. PREDNISONE [Suspect]
     Active Substance: PREDNISONE
     Indication: Rheumatoid arthritis
     Dosage: 50 MILLIGRAM, DAILY
     Route: 048
  2. METHOTREXATE [Concomitant]
     Active Substance: METHOTREXATE
     Indication: Rheumatoid arthritis
     Dosage: 15 MILLIGRAM, WEEKLY
     Route: 058

REACTIONS (2)
  - Condition aggravated [Unknown]
  - Disease recurrence [Unknown]
